FAERS Safety Report 9694148 (Version 2)
Quarter: 2013Q4

REPORT INFORMATION
  Report Type: Spontaneous
  Country: US (occurrence: US)
  Receive Date: 20131118
  Receipt Date: 20131125
  Transmission Date: 20140711
  Serious: No
  Sender: FDA-Public Use
  Company Number: US-GILEAD-2013-0087663

PATIENT
  Sex: Female

DRUGS (3)
  1. LETAIRIS [Suspect]
     Indication: PULMONARY ARTERIAL HYPERTENSION
     Dosage: 10 MG, QD
     Dates: start: 20130301
  2. LETAIRIS [Suspect]
     Indication: HEREDITARY HAEMORRHAGIC TELANGIECTASIA
  3. SILDENAFIL [Concomitant]

REACTIONS (1)
  - Dizziness [Unknown]
